FAERS Safety Report 8307363-5 (Version None)
Quarter: 2012Q2

REPORT INFORMATION
  Report Type: 
  Country: None (occurrence: None)
  Receive Date: 20120424
  Receipt Date: 20120413
  Transmission Date: 20120825
  Serious: Yes (Life-Threatening, Hospitalization)
  Sender: FDA-Public Use
  Company Number: SE-BRISTOL-MYERS SQUIBB COMPANY-16406001

PATIENT
  Age: 55 Year
  Sex: Female

DRUGS (4)
  1. SIMVASTATIN [Concomitant]
  2. METFORMIN HCL [Suspect]
     Indication: TYPE 2 DIABETES MELLITUS
  3. RAMIPRIL [Concomitant]
  4. ATENOLOL [Concomitant]

REACTIONS (4)
  - LACTIC ACIDOSIS [None]
  - FATIGUE [None]
  - VOMITING [None]
  - RENAL FAILURE ACUTE [None]
